FAERS Safety Report 11611214 (Version 1)
Quarter: 2015Q4

REPORT INFORMATION
  Report Type: Spontaneous
  Country: PL (occurrence: PL)
  Receive Date: 20151008
  Receipt Date: 20151008
  Transmission Date: 20160304
  Serious: Yes (Other)
  Sender: FDA-Public Use
  Company Number: PL-TEVA-597638ACC

PATIENT
  Sex: Female
  Weight: 69 kg

DRUGS (4)
  1. BLEOMEDAC [Suspect]
     Active Substance: BLEOMYCIN SULFATE
     Dosage: DOSE:17 ; DOSE UNIT: NOT SPECIFIED
     Route: 042
     Dates: start: 20140721
  2. DOXORUBICIN EBEWE [Suspect]
     Active Substance: DOXORUBICIN
     Indication: HODGKIN^S DISEASE
     Dosage: DOSE:42.5 ; DOSE UNIT: NOT SPECIFIED
     Route: 042
     Dates: start: 20140721
  3. DACARBAZIN TEVA [Suspect]
     Active Substance: DACARBAZINE
     Dosage: DOSE:637 ; DOSE UNIT: NOT SPECIFIED
     Route: 042
     Dates: start: 20140721
  4. VINBLASTIN RICHTER [Suspect]
     Active Substance: VINBLASTINE SULFATE
     Dosage: DOSE:10 ; DOSE UNIT: NOT SPECIFIED
     Route: 042
     Dates: start: 20140721

REACTIONS (1)
  - Neutropenia [Recovering/Resolving]
